FAERS Safety Report 14624553 (Version 2)
Quarter: 2018Q1

REPORT INFORMATION
  Report Type: Spontaneous
  Country: CZ (occurrence: CZ)
  Receive Date: 20180312
  Receipt Date: 20180329
  Transmission Date: 20180509
  Serious: Yes (Other)
  Sender: FDA-Public Use
  Company Number: PHHY2018CZ035263

PATIENT
  Age: 80 Year
  Sex: Female

DRUGS (8)
  1. VOTRIENT [Suspect]
     Active Substance: PAZOPANIB HYDROCHLORIDE
     Dosage: 800 MG, QD
     Route: 065
     Dates: start: 20150520, end: 20150619
  2. VOTRIENT [Suspect]
     Active Substance: PAZOPANIB HYDROCHLORIDE
     Dosage: 600 MG, QD
     Route: 065
     Dates: start: 20150626, end: 20150820
  3. TRITTICO [Concomitant]
     Active Substance: TRAZODONE HYDROCHLORIDE
     Indication: PRODUCT USED FOR UNKNOWN INDICATION
     Dosage: UNK
     Route: 065
     Dates: end: 20180123
  4. VOTRIENT [Suspect]
     Active Substance: PAZOPANIB HYDROCHLORIDE
     Dosage: 600 MG, QD
     Route: 065
     Dates: start: 20150423, end: 20150520
  5. VOTRIENT [Suspect]
     Active Substance: PAZOPANIB HYDROCHLORIDE
     Dosage: 400 MG, QD
     Route: 065
     Dates: start: 20141111, end: 20141218
  6. VOTRIENT [Suspect]
     Active Substance: PAZOPANIB HYDROCHLORIDE
     Dosage: 400 MG, QD
     Route: 065
     Dates: start: 20150820, end: 20180128
  7. VOTRIENT [Suspect]
     Active Substance: PAZOPANIB HYDROCHLORIDE
     Indication: NEOPLASM MALIGNANT
     Dosage: 400 MG, QD
     Route: 065
     Dates: start: 20141023
  8. VOTRIENT [Suspect]
     Active Substance: PAZOPANIB HYDROCHLORIDE
     Dosage: 600 MG, QD
     Route: 065
     Dates: start: 20141218, end: 20150410

REACTIONS (15)
  - Necrosis [Unknown]
  - Phlebitis [Unknown]
  - Arthralgia [Unknown]
  - Haemoglobin increased [Unknown]
  - Dysphonia [Unknown]
  - Herpes zoster [Unknown]
  - Spinal pain [Unknown]
  - Vaginal haemorrhage [Unknown]
  - Pancreatic neoplasm [Unknown]
  - Rectal haemorrhage [Unknown]
  - Rash [Unknown]
  - Pulmonary fibrosis [Unknown]
  - Fatigue [Unknown]
  - Blood pressure increased [Unknown]
  - Diarrhoea [Recovering/Resolving]

NARRATIVE: CASE EVENT DATE: 20141024
